FAERS Safety Report 7878750-4 (Version None)
Quarter: 2011Q4

REPORT INFORMATION
  Report Type: 
  Country: None (occurrence: None)
  Receive Date: 20111101
  Receipt Date: 20111025
  Transmission Date: 20120403
  Serious: Yes (Other)
  Sender: FDA-Public Use
  Company Number: US-BAYER-2011-076516

PATIENT
  Sex: Female
  Weight: 61.678 kg

DRUGS (1)
  1. MIRENA [Suspect]
     Indication: CONTRACEPTION
     Dosage: 20 MCG/24HR, CONT
     Route: 015
     Dates: start: 20091006, end: 20110826

REACTIONS (12)
  - ABDOMINAL PAIN [None]
  - DEVICE BREAKAGE [None]
  - COMPLICATION OF DEVICE REMOVAL [None]
  - PROCEDURAL PAIN [None]
  - ABDOMINAL DISTENSION [None]
  - PAIN [None]
  - DYSPAREUNIA [None]
  - MEDICAL DEVICE COMPLICATION [None]
  - PRODUCT QUALITY ISSUE [None]
  - MENORRHAGIA [None]
  - WEIGHT INCREASED [None]
  - DEVICE DISLOCATION [None]
